FAERS Safety Report 24185144 (Version 2)
Quarter: 2024Q3

REPORT INFORMATION
  Report Type: Spontaneous
  Country: FR (occurrence: FR)
  Receive Date: 20240807
  Receipt Date: 20240822
  Transmission Date: 20241016
  Serious: Yes (Other)
  Sender: AMERICAN REGENT
  Company Number: FR-AMERICAN REGENT INC-2024002993

PATIENT
  Age: 57 Year
  Sex: Male

DRUGS (23)
  1. VENOFER [Suspect]
     Active Substance: IRON SUCROSE
     Indication: Iron deficiency anaemia
     Dosage: 1 DOSAGE FORM (1 DOSAGE FORMS,1 IN 1 TOTAL)
     Route: 042
     Dates: start: 20240620, end: 20240620
  2. VENOFER [Suspect]
     Active Substance: IRON SUCROSE
     Dosage: 1 DOSAGE FORM (1 DOSAGE FORMS,1 IN 1 TOTAL)
     Route: 042
     Dates: start: 20240622, end: 20240622
  3. DIATRIZOATE MEGLUMINE\DIATRIZOATE SODIUM [Suspect]
     Active Substance: DIATRIZOATE MEGLUMINE\DIATRIZOATE SODIUM
     Indication: Scan
     Dosage: 1 DOSAGE FORM (1 DOSAGE FORMS,1 IN 1 TOTAL) ORAL OR RECTAL SOLUTION
     Route: 048
     Dates: start: 20240621, end: 20240621
  4. DIATRIZOATE MEGLUMINE\DIATRIZOATE SODIUM [Suspect]
     Active Substance: DIATRIZOATE MEGLUMINE\DIATRIZOATE SODIUM
     Dosage: 370 MG IODINE/ML (1 DOSAGE FORMS,1 IN 1 TOTAL)
     Route: 048
     Dates: start: 20240621, end: 20240621
  5. ALFENTANIL HYDROCHLORIDE [Suspect]
     Active Substance: ALFENTANIL HYDROCHLORIDE
     Indication: Pain
     Dosage: 750 [PG] IF NEEDED
     Route: 042
     Dates: start: 20240620, end: 20240702
  6. OMNIPAQUE [Suspect]
     Active Substance: IOHEXOL
     Indication: Scan
     Dosage: 1 DOSAGE FORM, 350 MG I/ML INJECTABLE SOLUTION 1 IN 1 TOTAL
     Route: 042
     Dates: start: 20240614, end: 20240614
  7. OMNIPAQUE [Suspect]
     Active Substance: IOHEXOL
     Dosage: 1 DOSAGE FORM, 350 MG I/ML INJECTABLE SOLUTION 1 IN 1 TOTAL
     Route: 042
     Dates: start: 20240618, end: 20240618
  8. OMNIPAQUE [Suspect]
     Active Substance: IOHEXOL
     Dosage: 1 DOSAGE FORM, 350 MG I/ML INJECTABLE SOLUTION 1 IN 1 TOTAL
     Route: 042
     Dates: start: 20240621, end: 20240621
  9. OMNIPAQUE [Suspect]
     Active Substance: IOHEXOL
     Dosage: 1 DOSAGE FORM, 350 MG I/ML INJECTABLE SOLUTION 1 IN 1 TOTAL
     Route: 042
     Dates: start: 20240625, end: 20240625
  10. OMNIPAQUE [Suspect]
     Active Substance: IOHEXOL
     Dosage: 1 DOSAGE FORM, 350 MG I/ML INJECTABLE SOLUTION 1 IN 1 TOTAL
     Route: 042
     Dates: start: 20240630, end: 20240630
  11. ATENOLOL [Suspect]
     Active Substance: ATENOLOL
     Indication: Abdominal pain
     Dosage: 50 MILLIGRAM 1 IN 1D (SCORED FILM COATED TABLET)
     Route: 048
     Dates: start: 20240623, end: 20240703
  12. KETAMINE [Suspect]
     Active Substance: KETAMINE
     Indication: Pain
     Dosage: 20 MILLIGRAM IF NEEDED
     Route: 042
     Dates: start: 20240620, end: 20240702
  13. ROPIVACAINE [Suspect]
     Active Substance: ROPIVACAINE
     Indication: Pain
     Dosage: UNK
     Route: 008
     Dates: start: 20240617, end: 20240620
  14. ROPIVACAINE [Suspect]
     Active Substance: ROPIVACAINE
     Dosage: UNK
     Route: 008
     Dates: start: 20240623, end: 20240625
  15. PANTOPRAZOLE SODIUM [Suspect]
     Active Substance: PANTOPRAZOLE SODIUM
     Indication: Prophylaxis against gastrointestinal ulcer
     Dosage: 40 MILLIGRAM, 1 IN 1 D
     Route: 042
     Dates: start: 20240617, end: 20240625
  16. GABAPENTIN [Suspect]
     Active Substance: GABAPENTIN
     Indication: Neuralgia
     Dosage: 900 MILLIGRAM 1 IN 1D
     Route: 048
     Dates: start: 20240617, end: 20240619
  17. GABAPENTIN [Suspect]
     Active Substance: GABAPENTIN
     Dosage: 900 MILLIGRAM 1  IN 1D
     Route: 048
     Dates: start: 20240623, end: 20240626
  18. MORPHINE HYDROCHLORIDE [Suspect]
     Active Substance: MORPHINE HYDROCHLORIDE
     Indication: Pain
     Dosage: 30 MILLIGRAM, 1 IN 1D
     Route: 042
     Dates: start: 20240617, end: 20240701
  19. MORPHINE HYDROCHLORIDE [Suspect]
     Active Substance: MORPHINE HYDROCHLORIDE
     Dosage: 30 MILLIGRAM, 1IN 1 TOTAL
     Route: 042
     Dates: start: 20240703, end: 20240703
  20. TRIMEBUTINE MALEATE [Suspect]
     Active Substance: TRIMEBUTINE MALEATE
     Indication: Abdominal pain
     Dosage: 300 MILLIGRAM 1 IN 1D
     Route: 042
     Dates: start: 20240617, end: 20240627
  21. ATENOLOL [Suspect]
     Active Substance: ATENOLOL
     Indication: Abdominal pain
     Dosage: 5 MG/10 ML SOLUTION FOR IV INJECTION IN AMPOULE (6 MG, 1 IN 1 D)
     Route: 042
     Dates: start: 20240620, end: 2024
  22. DULOXETINE HYDROCHLORIDE [Suspect]
     Active Substance: DULOXETINE HYDROCHLORIDE
     Indication: Neuralgia
     Dosage: 60 MILLIGRAM, 1 IN1 D (GASTRO-RESISTANT CAPSULE)
     Route: 048
     Dates: start: 20240617, end: 20240619
  23. DULOXETINE HYDROCHLORIDE [Suspect]
     Active Substance: DULOXETINE HYDROCHLORIDE
     Dosage: 60 MILLIGRAM, 1 IN1 D (GASTRO-RESISTANT CAPSULE)
     Route: 048
     Dates: start: 20240623, end: 20240626

REACTIONS (4)
  - Eosinophilia [Recovering/Resolving]
  - Eczema [Recovering/Resolving]
  - Blister [Recovering/Resolving]
  - Rash morbilliform [Recovering/Resolving]

NARRATIVE: CASE EVENT DATE: 20240625
